FAERS Safety Report 11512416 (Version 2)
Quarter: 2015Q4

REPORT INFORMATION
  Report Type: Spontaneous
  Country: CH (occurrence: CH)
  Receive Date: 20150916
  Receipt Date: 20151002
  Transmission Date: 20160304
  Serious: Yes (Other)
  Sender: FDA-Public Use
  Company Number: CH-TEVA-593082ISR

PATIENT

DRUGS (1)
  1. TERBINAFINE HYDOCHLORIDE [Suspect]
     Active Substance: TERBINAFINE HYDROCHLORIDE
     Indication: ANTIFUNGAL TREATMENT
     Dosage: IT WAS CONFIRMED THAT TERBINAFINE WAS NOT A TEVA DRUG
     Route: 065
     Dates: start: 2014

REACTIONS (1)
  - Soft tissue inflammation [Unknown]

NARRATIVE: CASE EVENT DATE: 2014
